FAERS Safety Report 13416393 (Version 2)
Quarter: 2017Q2

REPORT INFORMATION
  Report Type: Spontaneous
  Country: US (occurrence: US)
  Receive Date: 20170407
  Receipt Date: 20170630
  Transmission Date: 20170830
  Serious: No
  Sender: FDA-Public Use
  Company Number: US-INCYTE CORPORATION-2017IN002450

PATIENT

DRUGS (2)
  1. JAKAFI [Suspect]
     Active Substance: RUXOLITINIB
     Indication: GRAFT VERSUS HOST DISEASE
     Dosage: 10 MG, UNK
     Route: 048
     Dates: start: 20161204
  2. JAKAFI [Suspect]
     Active Substance: RUXOLITINIB
     Dosage: UNK

REACTIONS (1)
  - Off label use [Unknown]
